FAERS Safety Report 19804217 (Version 1)
Quarter: 2021Q3

REPORT INFORMATION
  Report Type: Spontaneous
  Country: US (occurrence: US)
  Receive Date: 20210908
  Receipt Date: 20210908
  Transmission Date: 20211014
  Serious: No
  Sender: FDA-Public Use
  Company Number: US-FARMAPROD-202012-1725

PATIENT
  Age: 65 Year
  Sex: Female

DRUGS (10)
  1. OXERVATE [Suspect]
     Active Substance: CENEGERMIN-BKBJ
     Indication: NEUROTROPHIC KERATOPATHY
     Route: 047
     Dates: start: 20201109, end: 20210107
  2. ARTIFICIAL TEARS [Concomitant]
     Active Substance: GLYCERIN\HYPROMELLOSES\POLYETHYLENE GLYCOL 400
     Dosage: 0.1%?0.3%
  3. DOXYCYCLINE HYCLATE. [Concomitant]
     Active Substance: DOXYCYCLINE HYCLATE
     Indication: ULCERATIVE KERATITIS
     Dates: start: 20201028, end: 20201106
  4. GABAPENTIN. [Concomitant]
     Active Substance: GABAPENTIN
  5. VIGAMOX [Concomitant]
     Active Substance: MOXIFLOXACIN HYDROCHLORIDE
     Indication: ULCERATIVE KERATITIS
     Route: 047
     Dates: start: 20201028
  6. OXYCODONE HYDROCHLORIDE. [Concomitant]
     Active Substance: OXYCODONE HYDROCHLORIDE
  7. ERYTHROMYCIN. [Concomitant]
     Active Substance: ERYTHROMYCIN
     Indication: ULCERATIVE KERATITIS
     Route: 047
     Dates: start: 20201210
  8. SENNA?S 8.6MG [Concomitant]
     Dosage: 8.6 MG+50 MG
  9. GABAPENTIN. [Concomitant]
     Active Substance: GABAPENTIN
  10. VITAMINE C [Concomitant]
     Active Substance: ASCORBIC ACID
     Indication: ULCERATIVE KERATITIS
     Dates: start: 20201028

REACTIONS (3)
  - Facial discomfort [Recovered/Resolved]
  - Dysphagia [Recovered/Resolved]
  - Paraesthesia [Recovered/Resolved]

NARRATIVE: CASE EVENT DATE: 20201120
